FAERS Safety Report 4309515-8 (Version None)
Quarter: 2004Q1

REPORT INFORMATION
  Report Type: 
  Country: None (occurrence: None)
  Receive Date: 20040301
  Receipt Date: 20040218
  Transmission Date: 20041129
  Serious: Yes (Hospitalization)
  Sender: FDA-Public Use
  Company Number: 2004SE00695

PATIENT
  Age: 40 Year
  Sex: Female
  Weight: 53 kg

DRUGS (2)
  1. BLOPRESS [Suspect]
     Indication: HYPERTENSION
     Dosage: 8 MG QD PO
     Route: 048
     Dates: start: 20040129, end: 20040203
  2. PARDOCLIN [Suspect]
     Dosage: 200 MG DAILY IVD
     Route: 041
     Dates: start: 20040126, end: 20040129

REACTIONS (5)
  - BLOOD PRESSURE INCREASED [None]
  - DRUG ERUPTION [None]
  - ERYTHEMA MULTIFORME [None]
  - HYPERSENSITIVITY [None]
  - PROTEINURIA [None]
